FAERS Safety Report 4355655-7 (Version None)
Quarter: 2004Q2

REPORT INFORMATION
  Report Type: 
  Country: None (occurrence: None)
  Receive Date: 20040507
  Receipt Date: 20040422
  Transmission Date: 20050107
  Serious: Yes (Hospitalization)
  Sender: FDA-Public Use
  Company Number: US-SHR-04-022695

PATIENT
  Age: 59 Year
  Sex: Male
  Weight: 113.4 kg

DRUGS (2)
  1. BETASERON [Suspect]
     Indication: DISEASE PROGRESSION
     Dates: start: 19960301
  2. BETASERON [Suspect]
     Indication: MULTIPLE SCLEROSIS
     Dates: start: 19960301

REACTIONS (1)
  - INTERSTITIAL LUNG DISEASE [None]
